FAERS Safety Report 24963647 (Version 2)
Quarter: 2025Q2

REPORT INFORMATION
  Report Type: Report from Study
  Country: CA (occurrence: CA)
  Receive Date: 20250213
  Receipt Date: 20250417
  Transmission Date: 20250716
  Serious: Yes (Other)
  Sender: SANDOZ
  Company Number: CA-002147023-NVSC2022CA110204

PATIENT
  Age: 65 Year
  Sex: Female

DRUGS (7)
  1. HYRIMOZ [Suspect]
     Active Substance: ADALIMUMAB-ADAZ
     Dosage: 40 MG(PRE-FILLED PEN)
     Route: 058
     Dates: start: 20220215
  2. HYRIMOZ [Suspect]
     Active Substance: ADALIMUMAB-ADAZ
     Dosage: 40 MG, QW
     Route: 058
     Dates: start: 20220215
  3. HYRIMOZ [Suspect]
     Active Substance: ADALIMUMAB-ADAZ
     Indication: Crohn^s disease
     Route: 058
     Dates: start: 20220215
  4. HYRIMOZ [Suspect]
     Active Substance: ADALIMUMAB-ADAZ
     Route: 058
     Dates: start: 20230401
  5. HUMIRA [Concomitant]
     Active Substance: ADALIMUMAB
     Indication: Product used for unknown indication
     Route: 065
  6. PREVNAR [Concomitant]
     Active Substance: PNEUMOCOCCAL 7-VALENT CONJUGATE VACCINE (DIPHTHERIA CRM197 PROTEIN)
     Indication: Product used for unknown indication
     Route: 065
  7. SHINGRIX [Concomitant]
     Active Substance: RECOMBINANT VARICELLA ZOSTER VIRUS (VZV) GLYCOPROTEIN E
     Indication: Product used for unknown indication
     Route: 065

REACTIONS (18)
  - Crohn^s disease [Unknown]
  - Dacryocystitis [Unknown]
  - Dacryocystitis [Unknown]
  - Blepharitis [Unknown]
  - Blepharitis [Unknown]
  - Dry eye [Not Recovered/Not Resolved]
  - Gastrointestinal disorder [Unknown]
  - General physical health deterioration [Unknown]
  - Fatigue [Unknown]
  - Pain [Recovered/Resolved]
  - Cough [Unknown]
  - Ear infection [Unknown]
  - Fungal infection [Unknown]
  - Visual impairment [Unknown]
  - Nausea [Recovering/Resolving]
  - Sinusitis [Unknown]
  - Abdominal pain [Unknown]
  - Off label use [Unknown]

NARRATIVE: CASE EVENT DATE: 20220301
